FAERS Safety Report 21366189 (Version 1)
Quarter: 2022Q3

REPORT INFORMATION
  Report Type: Spontaneous
  Country: US (occurrence: US)
  Receive Date: 20220922
  Receipt Date: 20220922
  Transmission Date: 20221026
  Serious: Yes (Death, Other)
  Sender: FDA-Public Use
  Company Number: US-BRISTOL-MYERS SQUIBB COMPANY-2022-110123

PATIENT
  Age: 77 Year
  Sex: Female

DRUGS (1)
  1. ABRAXANE [Suspect]
     Active Substance: PACLITAXEL
     Indication: Product used for unknown indication
     Dosage: FREQUENCY: ON DAYS 1, 8, 15 AND 22, THEN 1 WEEK OFF, THEN CYCLE WILL REPEAT
     Route: 058

REACTIONS (2)
  - Death [Fatal]
  - Off label use [Unknown]
